FAERS Safety Report 6219650-5 (Version None)
Quarter: 2009Q2

REPORT INFORMATION
  Report Type: 
  Country: None (occurrence: None)
  Receive Date: 20090609
  Receipt Date: 20090602
  Transmission Date: 20091009
  Serious: Yes (Hospitalization)
  Sender: FDA-Public Use
  Company Number: FR-BAYER-200921474GPV

PATIENT
  Age: 7 Year
  Sex: Male
  Weight: 22 kg

DRUGS (4)
  1. CIFLOX [Suspect]
     Indication: MENINGITIS BACTERIAL
     Dosage: NOS
     Route: 042
     Dates: start: 20090330, end: 20090419
  2. CLAFORAN [Suspect]
     Indication: MENINGITIS BACTERIAL
     Route: 042
     Dates: start: 20090327, end: 20090419
  3. FOSFOCINE [Suspect]
     Indication: MENINGITIS BACTERIAL
     Route: 042
     Dates: start: 20090327, end: 20090419
  4. VANCOMYCINE [Concomitant]
     Indication: MENINGITIS BACTERIAL
     Route: 042

REACTIONS (4)
  - AGRANULOCYTOSIS [None]
  - LYMPHOPENIA [None]
  - PYREXIA [None]
  - THROMBOCYTOPENIA [None]
